FAERS Safety Report 26085951 (Version 1)
Quarter: 2025Q4

REPORT INFORMATION
  Report Type: Spontaneous
  Country: KR (occurrence: KR)
  Receive Date: 20251125
  Receipt Date: 20251125
  Transmission Date: 20260117
  Serious: Yes (Other)
  Sender: Kenvue
  Company Number: KR-KENVUE-20251107217

PATIENT
  Age: 61 Year

DRUGS (1)
  1. TYLENOL 8HR [Suspect]
     Active Substance: ACETAMINOPHEN
     Indication: Headache
     Dosage: 650 MILLIGRAM, ONCE A DAY

REACTIONS (1)
  - Dyspnoea [Recovered/Resolved]
